FAERS Safety Report 4368449-3 (Version None)
Quarter: 2004Q2

REPORT INFORMATION
  Report Type: 
  Country: None (occurrence: None)
  Receive Date: 20040602
  Receipt Date: 20040227
  Transmission Date: 20050107
  Serious: No
  Sender: FDA-Public Use
  Company Number: US-GLAXOSMITHKLINE-A0500370A

PATIENT
  Age: 49 Year
  Sex: Male

DRUGS (2)
  1. AUGMENTIN [Suspect]
     Indication: SINUSITIS
     Dosage: 875MG TWICE PER DAY
     Route: 048
     Dates: start: 20040226
  2. ALLEGRA [Concomitant]

REACTIONS (2)
  - HYPOGEUSIA [None]
  - HYPOSMIA [None]
